FAERS Safety Report 7377519-7 (Version None)
Quarter: 2011Q1

REPORT INFORMATION
  Report Type: 
  Country: None (occurrence: None)
  Receive Date: 20110328
  Receipt Date: 20110318
  Transmission Date: 20110831
  Serious: Yes (Death)
  Sender: FDA-Public Use
  Company Number: US-CELGENEUS-163-21880-11032369

PATIENT
  Sex: Male

DRUGS (11)
  1. REVLIMID [Suspect]
     Indication: MULTIPLE MYELOMA
     Dosage: 15 MILLIGRAM
     Route: 048
     Dates: start: 20101001
  2. REVLIMID [Suspect]
     Dosage: 10 MILLIGRAM
     Route: 048
     Dates: start: 20100501
  3. OXYCODONE [Concomitant]
     Route: 065
  4. POTASSIUM CHLORIDE [Concomitant]
     Route: 065
  5. REVLIMID [Suspect]
     Dosage: 5 MILLIGRAM
     Route: 048
     Dates: start: 20100701
  6. ARANESP [Concomitant]
     Route: 065
  7. PROTONIX [Concomitant]
     Route: 065
  8. LASIX [Concomitant]
     Route: 065
  9. DEXAMETHASONE [Concomitant]
     Route: 065
  10. IRON [Concomitant]
     Route: 065
  11. COUMADIN [Concomitant]
     Route: 065

REACTIONS (1)
  - DEATH [None]
